FAERS Safety Report 4800086-6 (Version None)
Quarter: 2005Q4

REPORT INFORMATION
  Report Type: 
  Country: None (occurrence: None)
  Receive Date: 20051017
  Receipt Date: 20051004
  Transmission Date: 20060501
  Serious: Yes (Hospitalization, Other)
  Sender: FDA-Public Use
  Company Number: 200518887GDDC

PATIENT
  Age: 76 Year
  Sex: Male
  Weight: 81 kg

DRUGS (2)
  1. DOCETAXEL [Suspect]
     Indication: PROSTATE CANCER
     Route: 042
     Dates: start: 20050218
  2. ANTINEOPLASTIC AND IMMUNOSUPPRESSIVE AGENTS [Suspect]
     Indication: PROSTATE CANCER
     Route: 042
     Dates: start: 20050214, end: 20050829

REACTIONS (3)
  - ACCIDENTAL OVERDOSE [None]
  - ACUTE MYELOID LEUKAEMIA [None]
  - MEDICATION ERROR [None]
